FAERS Safety Report 6124874-1 (Version None)
Quarter: 2009Q1

REPORT INFORMATION
  Report Type: 
  Country: None (occurrence: None)
  Receive Date: 20090319
  Receipt Date: 20090309
  Transmission Date: 20090719
  Serious: Yes (Hospitalization, Other)
  Sender: FDA-Public Use
  Company Number: CA-PFIZER INC-2009181239

PATIENT

DRUGS (1)
  1. LIPITOR [Suspect]

REACTIONS (2)
  - PARALYSIS [None]
  - RHABDOMYOLYSIS [None]
